FAERS Safety Report 7669514-5 (Version None)
Quarter: 2011Q3

REPORT INFORMATION
  Report Type: 
  Country: None (occurrence: None)
  Receive Date: 20110808
  Receipt Date: 20110804
  Transmission Date: 20111222
  Serious: Yes (Hospitalization, Disabling)
  Sender: FDA-Public Use
  Company Number: US-MERCK-1103USA03955

PATIENT
  Age: 52 Year
  Sex: Female

DRUGS (3)
  1. FOSAMAX [Suspect]
     Indication: OSTEOPENIA
     Route: 048
     Dates: start: 19981019, end: 20051011
  2. FOSAMAX [Suspect]
     Route: 048
     Dates: start: 19981019, end: 20051011
  3. FOSAMAX PLUS D [Suspect]
     Indication: OSTEOPENIA
     Route: 048
     Dates: start: 20060215, end: 20091103

REACTIONS (16)
  - GASTROOESOPHAGEAL REFLUX DISEASE [None]
  - PALPITATIONS [None]
  - GLAUCOMA [None]
  - SYNOVIAL CYST [None]
  - FEMUR FRACTURE [None]
  - ANXIETY [None]
  - POST-TRAUMATIC STRESS DISORDER [None]
  - BLOOD CHOLESTEROL INCREASED [None]
  - HYPERSENSITIVITY [None]
  - BACK PAIN [None]
  - HYPERTENSION [None]
  - TOOTH FRACTURE [None]
  - LOW TURNOVER OSTEOPATHY [None]
  - FALL [None]
  - LYMPH GLAND INFECTION [None]
  - DEPRESSION [None]
